FAERS Safety Report 5682340-1 (Version None)
Quarter: 2008Q1

REPORT INFORMATION
  Report Type: 
  Country: None (occurrence: None)
  Receive Date: 20080327
  Receipt Date: 20080325
  Transmission Date: 20080703
  Serious: Yes (Death)
  Sender: FDA-Public Use
  Company Number: US-JNJFOC-20080305865

PATIENT
  Sex: Female
  Weight: 59.42 kg

DRUGS (7)
  1. DOXORUBICIN HCL [Suspect]
     Indication: OVARIAN CANCER
     Route: 042
  2. ZOFRAN [Concomitant]
     Indication: NAUSEA
     Route: 058
  3. DOPAMINE HCL [Concomitant]
     Indication: CARDIAC DISORDER
     Route: 042
  4. HYDROMORPHONE HCL [Concomitant]
     Indication: PAIN
     Route: 048
  5. PROTONIX [Concomitant]
     Indication: GASTROOESOPHAGEAL REFLUX DISEASE
     Route: 048
  6. COMPAZINE [Concomitant]
     Indication: VOMITING
     Route: 048
  7. COMPAZINE [Concomitant]
     Indication: NAUSEA
     Route: 048

REACTIONS (1)
  - DEATH [None]
